FAERS Safety Report 6761378-7 (Version None)
Quarter: 2010Q2

REPORT INFORMATION
  Report Type: 
  Country: None (occurrence: None)
  Receive Date: 20100607
  Receipt Date: 20100604
  Transmission Date: 20101027
  Serious: Yes (Other)
  Sender: FDA-Public Use
  Company Number: ZA-1181916

PATIENT
  Age: 64 Year
  Sex: Female

DRUGS (1)
  1. CIPRO HC [Suspect]
     Indication: EAR PAIN
     Dosage: AURICULAR (OTIC)
     Route: 001

REACTIONS (2)
  - DRUG PRESCRIBING ERROR [None]
  - FOREIGN BODY [None]
